FAERS Safety Report 7993935-4 (Version None)
Quarter: 2011Q4

REPORT INFORMATION
  Report Type: 
  Country: None (occurrence: None)
  Receive Date: 20111220
  Receipt Date: 20111213
  Transmission Date: 20120403
  Serious: Yes (Other)
  Sender: FDA-Public Use
  Company Number: US-ASTRAZENECA-2006UW27579

PATIENT
  Age: 603 Month
  Sex: Female
  Weight: 146 kg

DRUGS (17)
  1. SEROQUEL [Suspect]
     Route: 048
     Dates: start: 20021127
  2. EFFEXOR [Concomitant]
     Dates: start: 20030130
  3. ZYPREXA [Suspect]
  4. LIPITOR [Concomitant]
  5. LIPITOR [Concomitant]
     Dates: start: 20021217
  6. ASPIRIN [Concomitant]
  7. ACTOS [Concomitant]
     Dates: start: 20021018
  8. ABILIFY [Concomitant]
  9. XANAX XR [Concomitant]
  10. GABITRIL [Concomitant]
     Dates: start: 20021104
  11. ZOLOFT [Concomitant]
  12. XANAX XR [Concomitant]
     Dates: start: 20021104
  13. FLUOXETINE [Concomitant]
     Dates: start: 20021104
  14. RISPERDAL [Suspect]
     Indication: OBSESSIVE-COMPULSIVE DISORDER
     Dates: start: 20010214, end: 20031012
  15. SEROQUEL [Suspect]
     Indication: OBSESSIVE-COMPULSIVE DISORDER
     Dosage: 100,200,300MG
     Route: 048
     Dates: start: 20021127, end: 20060426
  16. SEROQUEL [Suspect]
     Route: 048
     Dates: start: 20080422
  17. RISPERDAL [Suspect]
     Dates: start: 20021104

REACTIONS (5)
  - DIABETIC NEPHROPATHY [None]
  - NEPHRITIS [None]
  - DIABETIC RETINOPATHY [None]
  - DIABETIC NEUROPATHY [None]
  - TYPE 2 DIABETES MELLITUS [None]
